FAERS Safety Report 14388982 (Version 2)
Quarter: 2018Q4

REPORT INFORMATION
  Report Type: Spontaneous
  Country: US (occurrence: US)
  Receive Date: 20180115
  Receipt Date: 20181217
  Transmission Date: 20190204
  Serious: Yes (Other)
  Sender: FDA-Public Use
  Company Number: US-SA-2017SA232214

PATIENT
  Age: 65 Year
  Sex: Female
  Weight: 58.96 kg

DRUGS (5)
  1. TAXOTERE [Suspect]
     Active Substance: DOCETAXEL
     Indication: BREAST CANCER FEMALE
     Dosage: 114.8 MG, QCY
     Route: 042
     Dates: start: 20130207, end: 20130207
  2. TAMOXIFEN [Concomitant]
     Active Substance: TAMOXIFEN
  3. DEMEROL [Concomitant]
     Active Substance: MEPERIDINE HYDROCHLORIDE
     Dosage: 25 MG, PRN
     Route: 042
     Dates: start: 20130207, end: 20130208
  4. TAXOTERE [Suspect]
     Active Substance: DOCETAXEL
     Dosage: 114.8 MG, QCY
     Route: 042
     Dates: start: 2015, end: 2015
  5. SOLU-CORTEF [Concomitant]
     Active Substance: HYDROCORTISONE SODIUM SUCCINATE
     Dosage: 100 MG, PRN
     Route: 042
     Dates: start: 20130207, end: 20130208

REACTIONS (6)
  - Alopecia [Recovering/Resolving]
  - Pain [Unknown]
  - Anxiety [Unknown]
  - Psychological trauma [Unknown]
  - Emotional distress [Unknown]
  - Impaired quality of life [Unknown]
